FAERS Safety Report 5720406-8 (Version None)
Quarter: 2008Q2

REPORT INFORMATION
  Report Type: 
  Country: None (occurrence: None)
  Receive Date: 20080428
  Receipt Date: 20080423
  Transmission Date: 20081010
  Serious: Yes (Hospitalization)
  Sender: FDA-Public Use
  Company Number: CA-BOEHRINGER INGELHEIM GMBH, GERMANY-2008-DE-02458GD

PATIENT
  Age: 63 Year
  Sex: Male

DRUGS (7)
  1. NAPROXEN [Suspect]
  2. TENOFOVIR DISOPROXIL FUMARATE [Suspect]
     Indication: HIV INFECTION
  3. LAMIVUDINE [Concomitant]
     Indication: HIV INFECTION
  4. LOPINAVIR AND RITONAVIR [Concomitant]
     Indication: HIV INFECTION
  5. OLANZAPINE [Concomitant]
  6. PAROXETINE HCL [Concomitant]
  7. BUPROPION HCL [Concomitant]

REACTIONS (5)
  - HAEMATEMESIS [None]
  - HEMIPARESIS [None]
  - PYREXIA [None]
  - RENAL FAILURE ACUTE [None]
  - RHABDOMYOLYSIS [None]
